FAERS Safety Report 26019510 (Version 2)
Quarter: 2025Q4

REPORT INFORMATION
  Report Type: Report from Study
  Country: CN (occurrence: CN)
  Receive Date: 20251110
  Receipt Date: 20251121
  Transmission Date: 20260118
  Serious: Yes (Other)
  Sender: ROCHE
  Company Number: CN-ROCHE-10000429345

PATIENT

DRUGS (7)
  1. GLOFITAMAB [Suspect]
     Active Substance: GLOFITAMAB
     Indication: Diffuse large B-cell lymphoma refractory
     Route: 065
  2. POLATUZUMAB VEDOTIN [Suspect]
     Active Substance: POLATUZUMAB VEDOTIN
     Indication: Diffuse large B-cell lymphoma refractory
     Route: 065
  3. OBINUTUZUMAB [Suspect]
     Active Substance: OBINUTUZUMAB
     Indication: Diffuse large B-cell lymphoma refractory
     Route: 065
  4. ACALABRUTINIB [Suspect]
     Active Substance: ACALABRUTINIB
     Indication: Diffuse large B-cell lymphoma refractory
     Route: 065
  5. ZANUBRUTINIB [Suspect]
     Active Substance: ZANUBRUTINIB
     Indication: Diffuse large B-cell lymphoma refractory
     Route: 065
  6. SINTILIMAB [Suspect]
     Active Substance: SINTILIMAB
     Indication: Diffuse large B-cell lymphoma refractory
     Route: 065
  7. LENALIDOMIDE [Suspect]
     Active Substance: LENALIDOMIDE
     Indication: Diffuse large B-cell lymphoma refractory
     Route: 065

REACTIONS (2)
  - Cytokine release syndrome [Unknown]
  - Tumour flare [Unknown]
